FAERS Safety Report 7936432-4 (Version None)
Quarter: 2011Q4

REPORT INFORMATION
  Report Type: 
  Country: None (occurrence: None)
  Receive Date: 20111123
  Receipt Date: 20111122
  Transmission Date: 20120403
  Serious: Yes (Death)
  Sender: FDA-Public Use
  Company Number: AU-B.I. PHARMACEUTICALS,INC./RIDGEFIELD-2011-AU-02226AU

PATIENT
  Sex: Male

DRUGS (8)
  1. LASIX [Concomitant]
  2. AMLODIPINE [Concomitant]
  3. FOSAMAX [Concomitant]
  4. PRADAXA [Suspect]
     Indication: ATRIAL FIBRILLATION
     Dosage: 220 MG
  5. PERINDOPRIL ERBUMINE [Concomitant]
  6. ACETAMINOPHEN W/ CODEINE [Concomitant]
  7. PROGOUT [Concomitant]
  8. XALATAN [Concomitant]

REACTIONS (2)
  - MYOCARDIAL INFARCTION [None]
  - CHEST PAIN [None]
